FAERS Safety Report 16160182 (Version 4)
Quarter: 2019Q4

REPORT INFORMATION
  Report Type: Report from Study
  Country: US (occurrence: US)
  Receive Date: 20190404
  Receipt Date: 20191009
  Transmission Date: 20200122
  Serious: Yes (Other)
  Sender: FDA-Public Use
  Company Number: US-ACTELION-A-US2019-184516

PATIENT
  Age: 49 Year
  Sex: Female
  Weight: 68.03 kg

DRUGS (2)
  1. VELETRI [Suspect]
     Active Substance: EPOPROSTENOL
     Dosage: 29.1 NG/KG, PER MIN
     Route: 042
  2. VELETRI [Suspect]
     Active Substance: EPOPROSTENOL
     Indication: PULMONARY ARTERIAL HYPERTENSION
     Dosage: 31.6 NG/KG, PER MIN
     Route: 042

REACTIONS (13)
  - Pruritus [Unknown]
  - Catheter placement [Unknown]
  - Catheter site swelling [Not Recovered/Not Resolved]
  - Complication associated with device [Unknown]
  - Breast cancer [Unknown]
  - Catheter site pruritus [Not Recovered/Not Resolved]
  - Dermatitis contact [Unknown]
  - Bronchitis [Unknown]
  - Blister [Unknown]
  - Unevaluable event [Unknown]
  - Pain [Unknown]
  - Catheter site irritation [Not Recovered/Not Resolved]
  - Catheter site erythema [Not Recovered/Not Resolved]

NARRATIVE: CASE EVENT DATE: 20181216
